FAERS Safety Report 17207912 (Version 1)
Quarter: 2019Q4

REPORT INFORMATION
  Report Type: Spontaneous
  Country: DE (occurrence: DE)
  Receive Date: 20191227
  Receipt Date: 20191227
  Transmission Date: 20200122
  Serious: Yes (Other)
  Sender: FDA-Public Use
  Company Number: DE-JNJFOC-20191240762

PATIENT
  Age: 70 Year
  Sex: Female
  Weight: 81 kg

DRUGS (8)
  1. ESTREVA [Concomitant]
     Active Substance: ESTRADIOL
  2. SALBUTAMOL [Concomitant]
     Active Substance: ALBUTEROL
  3. FLUTICASONE PROPIONATE. [Concomitant]
     Active Substance: FLUTICASONE PROPIONATE
  4. ASPIRIN. [Concomitant]
     Active Substance: ASPIRIN
  5. PANTOZOL [Concomitant]
     Active Substance: PANTOPRAZOLE SODIUM
  6. DYMISTA [Concomitant]
     Active Substance: AZELASTINE HYDROCHLORIDE\FLUTICASONE PROPIONATE
  7. NEBIVOLOL. [Concomitant]
     Active Substance: NEBIVOLOL
  8. STELARA [Suspect]
     Active Substance: USTEKINUMAB
     Indication: PSORIATIC ARTHROPATHY
     Route: 058
     Dates: start: 20130228

REACTIONS (1)
  - Arrhythmia [Not Recovered/Not Resolved]

NARRATIVE: CASE EVENT DATE: 20190621
